FAERS Safety Report 23421996 (Version 1)
Quarter: 2024Q1

REPORT INFORMATION
  Report Type: Spontaneous
  Country: CA (occurrence: CA)
  Receive Date: 20240119
  Receipt Date: 20240119
  Transmission Date: 20240410
  Serious: Yes (Disabling, Other)
  Sender: FDA-Public Use
  Company Number: CA-JNJFOC-20240129951

PATIENT
  Age: 8 Year
  Sex: Female

DRUGS (1)
  1. CONCERTA [Suspect]
     Active Substance: METHYLPHENIDATE HYDROCHLORIDE
     Indication: Attention deficit hyperactivity disorder
     Route: 048

REACTIONS (12)
  - Learning disability [Unknown]
  - Cholecystectomy [Unknown]
  - Illness [Unknown]
  - Communication disorder [Unknown]
  - Alcohol abuse [Unknown]
  - Sexual abuse [Unknown]
  - Increased need for sleep [Unknown]
  - Decreased appetite [Unknown]
  - Abdominal pain [Unknown]
  - Hyperhidrosis [Unknown]
  - White blood cell disorder [Unknown]
  - Off label use [Unknown]
